FAERS Safety Report 4598496-8 (Version None)
Quarter: 2005Q1

REPORT INFORMATION
  Report Type: 
  Country: None (occurrence: None)
  Receive Date: 20050303
  Receipt Date: 20050303
  Transmission Date: 20050727
  Serious: No
  Sender: FDA-Public Use
  Company Number: None

PATIENT
  Age: 55 Year
  Sex: Male

DRUGS (2)
  1. CUBICIN [Suspect]
     Dosage: 400 MG IV QD
     Route: 042
     Dates: start: 20041231, end: 20050311
  2. VICODIN [Concomitant]

REACTIONS (4)
  - CHILLS [None]
  - DEHYDRATION [None]
  - HEADACHE [None]
  - PYREXIA [None]
